FAERS Safety Report 17407846 (Version 1)
Quarter: 2020Q1

REPORT INFORMATION
  Report Type: Spontaneous
  Country: US (occurrence: US)
  Receive Date: 20200212
  Receipt Date: 20200212
  Transmission Date: 20200409
  Serious: No
  Sender: FDA-Public Use
  Company Number: US-PFIZER INC-2019253405

PATIENT
  Age: 59 Year
  Sex: Male

DRUGS (4)
  1. LYRICA [Suspect]
     Active Substance: PREGABALIN
     Indication: MAJOR DEPRESSION
     Dosage: 300 MG, ALTERNATE DAY (TOOK ONE CAP TID ALTERNATING WITH 1 CAP QID)
  2. LYRICA [Suspect]
     Active Substance: PREGABALIN
     Dosage: 400 MG, ALTERNATE DAY (TOOK ONE CAP TID ALTERNATING WITH 1 CAP QID)
  3. LYRICA [Suspect]
     Active Substance: PREGABALIN
     Dosage: 1 EXTRA PILL ON A BAD DAY, AS NEEDED (2 EXTRA PILLS A WEEK AT MAXIMUM)
     Route: 048
  4. LYRICA [Suspect]
     Active Substance: PREGABALIN
     Dosage: 100 MG, 3X/DAY
     Route: 048

REACTIONS (3)
  - Product use in unapproved indication [Unknown]
  - Off label use [Unknown]
  - Withdrawal syndrome [Unknown]
